FAERS Safety Report 14908102 (Version 1)
Quarter: 2018Q2

REPORT INFORMATION
  Report Type: Report from Study
  Country: IT (occurrence: IT)
  Receive Date: 20180517
  Receipt Date: 20180517
  Transmission Date: 20180711
  Serious: Yes (Hospitalization, Other)
  Sender: FDA-Public Use
  Company Number: IT-CONCORDIA PHARMACEUTICALS INC.-E2B_00011708

PATIENT
  Age: 75 Year
  Sex: Male

DRUGS (9)
  1. INFLUENZA VIRUS VACCINE [Interacting]
     Active Substance: INFLUENZA VIRUS VACCINE
     Dosage: UNK
  2. WARFARIN [Interacting]
     Active Substance: WARFARIN
     Dosage: UNK
  3. LACTULOSE. [Suspect]
     Active Substance: LACTULOSE
     Dosage: UNK
  4. OMEPRAZOLE. [Suspect]
     Active Substance: OMEPRAZOLE
     Dosage: UNK
  5. TAMSULOSIN HYDROCHLORIDE. [Suspect]
     Active Substance: TAMSULOSIN HYDROCHLORIDE
     Dosage: UNK
  6. BISOPROLOL [Suspect]
     Active Substance: BISOPROLOL
     Dosage: UNK
  7. CALCIUM CARBONATE. [Suspect]
     Active Substance: CALCIUM CARBONATE
     Dosage: UNK
  8. PREDNISOLONE. [Suspect]
     Active Substance: PREDNISOLONE
     Dosage: UNK
  9. MICONAZOLE. [Interacting]
     Active Substance: MICONAZOLE
     Dosage: UNK

REACTIONS (7)
  - Urinary tract infection [Unknown]
  - Asthenia [Unknown]
  - Mobility decreased [Unknown]
  - Platelet count decreased [Unknown]
  - Haematuria [Unknown]
  - Muscular weakness [Unknown]
  - Drug interaction [Unknown]
